FAERS Safety Report 6189523-5 (Version None)
Quarter: 2009Q2

REPORT INFORMATION
  Report Type: 
  Country: None (occurrence: None)
  Receive Date: 20090512
  Receipt Date: 20090427
  Transmission Date: 20091009
  Serious: Yes (Death, Hospitalization)
  Sender: FDA-Public Use
  Company Number: 2009001273

PATIENT
  Age: 63 Year
  Sex: Male
  Weight: 82 kg

DRUGS (2)
  1. ERLOTINIB     (ERLOTINIB) [Suspect]
     Indication: LUNG NEOPLASM MALIGNANT
     Dosage: 150 MG, QD), ORAL
     Route: 048
     Dates: start: 20081104, end: 20081203
  2. SUNITINIB  / PLACEBO [Suspect]
     Indication: LUNG NEOPLASM MALIGNANT
     Dosage: QD
     Dates: start: 20081104, end: 20081203

REACTIONS (12)
  - CEREBRAL HAEMORRHAGE [None]
  - CONFUSIONAL STATE [None]
  - DEHYDRATION [None]
  - DELIRIUM [None]
  - DEPRESSED LEVEL OF CONSCIOUSNESS [None]
  - DISEASE PROGRESSION [None]
  - DYSPNOEA [None]
  - INCONTINENCE [None]
  - MALIGNANT PLEURAL EFFUSION [None]
  - NON-SMALL CELL LUNG CANCER [None]
  - NON-SMALL CELL LUNG CANCER METASTATIC [None]
  - VASOGENIC CEREBRAL OEDEMA [None]
